FAERS Safety Report 5381892-9 (Version None)
Quarter: 2007Q3

REPORT INFORMATION
  Report Type: 
  Country: None (occurrence: None)
  Receive Date: 20070709
  Receipt Date: 20070627
  Transmission Date: 20080115
  Serious: Yes (Hospitalization)
  Sender: FDA-Public Use
  Company Number: JP-ASTRAZENECA-2007SE03144

PATIENT
  Age: 29590 Day
  Sex: Female
  Weight: 39 kg

DRUGS (10)
  1. BLOPRESS [Suspect]
     Indication: HYPERTENSION
     Route: 048
     Dates: start: 20010827, end: 20070301
  2. BLOPRESS [Suspect]
     Route: 048
     Dates: start: 20070501
  3. RISEDRONATE SODIUM [Suspect]
     Indication: OSTEOPOROSIS
     Route: 048
     Dates: start: 20010827, end: 20070301
  4. RISEDRONATE SODIUM [Suspect]
     Route: 048
     Dates: start: 20070501
  5. LIPITOR [Suspect]
     Indication: HYPERLIPIDAEMIA
     Route: 048
     Dates: start: 20010827, end: 20070301
  6. LIPITOR [Suspect]
     Route: 048
     Dates: start: 20070501
  7. STOGAR [Suspect]
     Indication: GASTRITIS
     Route: 048
     Dates: start: 20010827, end: 20070301
  8. STOGAR [Suspect]
     Route: 048
     Dates: start: 20070501
  9. ALFAROL [Suspect]
     Indication: OSTEOPOROSIS
     Route: 048
     Dates: start: 20010827, end: 20070301
  10. ALFAROL [Suspect]
     Route: 048
     Dates: start: 20070501

REACTIONS (1)
  - LIVER DISORDER [None]
